FAERS Safety Report 10478436 (Version 4)
Quarter: 2014Q4

REPORT INFORMATION
  Report Type: Spontaneous
  Country: BR (occurrence: BR)
  Receive Date: 20140926
  Receipt Date: 20141202
  Transmission Date: 20150528
  Serious: Yes (Other)
  Sender: FDA-Public Use
  Company Number: BR-PFIZER INC-2014258210

PATIENT
  Age: 56 Year
  Sex: Female
  Weight: 81 kg

DRUGS (12)
  1. FRONTAL [Suspect]
     Active Substance: ALPRAZOLAM
     Indication: AGITATION
     Dosage: 1 MG, 1X/DAY
     Route: 048
     Dates: start: 201404, end: 2014
  2. FRONTAL [Suspect]
     Active Substance: ALPRAZOLAM
     Dosage: 0.25 MG, AT NIGHT, HALF TABLET OF 0.5MG OR 1/4 TABLET OF 1MG
     Route: 048
     Dates: start: 2014
  3. OMEPRAZOLE. [Concomitant]
     Active Substance: OMEPRAZOLE
     Dosage: UNK
  4. FRONTAL [Suspect]
     Active Substance: ALPRAZOLAM
     Indication: INSOMNIA
     Dosage: 1 MG (1 TABLET OR TWO 0.5 MG TABLETS)
     Route: 048
     Dates: start: 2014, end: 2014
  5. FRONTAL [Suspect]
     Active Substance: ALPRAZOLAM
     Indication: DEPRESSION
     Dosage: 0.5 MG, UNK
     Route: 048
     Dates: start: 2014, end: 2014
  6. FRONTAL [Suspect]
     Active Substance: ALPRAZOLAM
     Indication: ANXIETY
     Dosage: 0.5 MG, 1X/DAY
     Route: 048
     Dates: start: 2012, end: 201404
  7. LEVOID [Concomitant]
     Active Substance: LEVOTHYROXINE
     Indication: HYPOTHYROIDISM
     Dosage: STRENGTH 50 MG, UNK
  8. GLIMEPIRIDE. [Concomitant]
     Active Substance: GLIMEPIRIDE
     Indication: DIABETES MELLITUS
     Dosage: 4 MG, DAILY
  9. LEUCOGEN [Concomitant]
     Active Substance: LEUCOGEN
     Indication: PAROTITIS
     Dosage: UNK
     Dates: start: 2012
  10. FRONTAL [Suspect]
     Active Substance: ALPRAZOLAM
     Indication: PANIC DISORDER
     Dosage: 0.5 MG (A HALF A TABLET), UNSPECIFIED FREQUENCY
     Route: 048
     Dates: start: 2014, end: 2014
  11. VICOG [Concomitant]
     Active Substance: VINPOCETINE
     Indication: HEADACHE
     Dosage: UNK
  12. VICOG [Concomitant]
     Active Substance: VINPOCETINE
     Indication: MEMORY IMPAIRMENT

REACTIONS (6)
  - Drug ineffective [Unknown]
  - Loss of consciousness [Unknown]
  - Memory impairment [Unknown]
  - Fall [Unknown]
  - Nervousness [Unknown]
  - Feeling abnormal [Unknown]

NARRATIVE: CASE EVENT DATE: 20121114
